FAERS Safety Report 9188200 (Version 3)
Quarter: 2013Q4

REPORT INFORMATION
  Report Type: Spontaneous
  Country: GB (occurrence: GB)
  Receive Date: 20130325
  Receipt Date: 20131018
  Transmission Date: 20140711
  Serious: Yes (Life-Threatening, Other)
  Sender: FDA-Public Use
  Company Number: GB-ASTRAZENECA-2013SE19004

PATIENT
  Age: 19 Year
  Sex: Female

DRUGS (17)
  1. OMEPRAZOLE [Suspect]
     Route: 048
  2. PARACETAMOL [Suspect]
     Route: 042
  3. MORPHINE [Suspect]
     Route: 042
  4. TAZOCIN [Suspect]
     Route: 042
  5. ACICLOVIR [Suspect]
     Route: 065
  6. ALLOPURINOL [Suspect]
     Route: 048
  7. CASPOFUNGIN [Suspect]
     Route: 042
  8. CHLORPHENIRAMINE MALEATE [Suspect]
     Route: 042
  9. CICLOSPORIN [Suspect]
     Route: 065
  10. ETOPOPHOS [Suspect]
     Route: 042
     Dates: start: 20070915, end: 20070915
  11. KETALAR [Suspect]
     Indication: PAIN
     Route: 042
     Dates: start: 20070921, end: 20070928
  12. ONDANSETRON HYDROCHLORIDE [Suspect]
     Route: 042
  13. ONDANSETRON HYDROCHLORIDE [Suspect]
     Route: 042
  14. NORETHISTERONE [Suspect]
     Route: 048
  15. NORETHISTERONE [Suspect]
     Route: 048
  16. VORICONAZOLE [Suspect]
     Route: 048
  17. TOTAL PARENTRAL NUTRITION (UNKNOWN) [Suspect]
     Route: 065

REACTIONS (3)
  - Venoocclusive liver disease [Unknown]
  - Drug-induced liver injury [Unknown]
  - Dilatation intrahepatic duct acquired [Unknown]
